FAERS Safety Report 17880764 (Version 6)
Quarter: 2020Q3

REPORT INFORMATION
  Report Type: Spontaneous
  Country: ES (occurrence: ES)
  Receive Date: 20200610
  Receipt Date: 20200901
  Transmission Date: 20201103
  Serious: Yes (Other)
  Sender: FDA-Public Use
  Company Number: ES-009507513-1703ESP007032

PATIENT
  Age: 12 Year
  Sex: Female

DRUGS (11)
  1. CIDOFOVIR. [Suspect]
     Active Substance: CIDOFOVIR
     Indication: RESPIRATORY PAPILLOMA
     Dosage: UNK
  2. INTERFERON ALFA?2B [Suspect]
     Active Substance: INTERFERON ALFA-2B
     Indication: RESPIRATORY PAPILLOMA
  3. CIDOFOVIR. [Suspect]
     Active Substance: CIDOFOVIR
     Indication: LARYNGEAL PAPILLOMA
     Dosage: UNK
  4. GARDASIL [Suspect]
     Active Substance: HUMAN PAPILLOMAVIRUS QUADRIVALENT (TYPES 6, 11, 16, AND 18) VACCINE, RECOMBINANT
     Indication: RESPIRATORY PAPILLOMA
     Dates: start: 200707, end: 200707
  5. INTERFERON ALFA?2B [Suspect]
     Active Substance: INTERFERON ALFA-2B
     Indication: LARYNGEAL PAPILLOMA
     Dosage: 4,5 MILLION OF UNITS, ALTERNATE DAYS
     Route: 058
     Dates: start: 200112, end: 200201
  6. CELECOXIB. [Suspect]
     Active Substance: CELECOXIB
     Indication: RESPIRATORY PAPILLOMA
     Dosage: 200 MG DAILY
     Route: 042
  7. ERLOTINIB HYDROCHLORIDE. [Suspect]
     Active Substance: ERLOTINIB HYDROCHLORIDE
     Indication: LARYNGEAL PAPILLOMA
     Dosage: UNK
  8. CELECOXIB. [Suspect]
     Active Substance: CELECOXIB
     Indication: LARYNGEAL PAPILLOMA
     Dosage: 200 MG DAILY
     Route: 042
  9. ERLOTINIB HYDROCHLORIDE. [Suspect]
     Active Substance: ERLOTINIB HYDROCHLORIDE
     Indication: RESPIRATORY PAPILLOMA
     Dosage: 150 MG DAILY
  10. ERLOTINIB HYDROCHLORIDE. [Suspect]
     Active Substance: ERLOTINIB HYDROCHLORIDE
     Dosage: UNK
  11. GARDASIL [Suspect]
     Active Substance: HUMAN PAPILLOMAVIRUS QUADRIVALENT (TYPES 6, 11, 16, AND 18) VACCINE, RECOMBINANT
     Indication: LARYNGEAL PAPILLOMA

REACTIONS (4)
  - Off label use [Unknown]
  - Laryngeal papilloma [Recovering/Resolving]
  - Respiratory papilloma [Recovering/Resolving]
  - Papilloma viral infection [Recovering/Resolving]

NARRATIVE: CASE EVENT DATE: 200707
